FAERS Safety Report 21444293 (Version 2)
Quarter: 2022Q4

REPORT INFORMATION
  Report Type: Report from Study
  Country: IT (occurrence: IT)
  Receive Date: 20221012
  Receipt Date: 20221128
  Transmission Date: 20230113
  Serious: Yes (Hospitalization)
  Sender: FDA-Public Use
  Company Number: IT-ABBVIE-4150704

PATIENT
  Age: 78 Year
  Sex: Male

DRUGS (2)
  1. CARBIDOPA\LEVODOPA [Suspect]
     Active Substance: CARBIDOPA\LEVODOPA
     Indication: Parkinson^s disease
     Dosage: DAILY DOSE: 1526 MG; PUMP SETTING: MD: 9,4+3 CR: 3,9 (5H), 4,6 (9H) ED: 3
     Dates: start: 20190506
  2. CARBIDOPA\LEVODOPA [Suspect]
     Active Substance: CARBIDOPA\LEVODOPA
     Dosage: DAILY DOSE: 1526 MG; PUMP SETTING: MD: 9,4+3 CR: 3,9 (5H), 4,6 (9H) ED: 3
     Route: 050
     Dates: start: 20190506

REACTIONS (3)
  - Femur fracture [Recovered/Resolved]
  - Device dislocation [Not Recovered/Not Resolved]
  - Device dislocation [Unknown]

NARRATIVE: CASE EVENT DATE: 20221001
